FAERS Safety Report 7509709-4 (Version None)
Quarter: 2011Q2

REPORT INFORMATION
  Report Type: 
  Country: None (occurrence: None)
  Receive Date: 20110527
  Receipt Date: 20110518
  Transmission Date: 20111010
  Serious: Yes (Hospitalization)
  Sender: FDA-Public Use
  Company Number: JP-MERCK-1104USA00938

PATIENT
  Age: 86 Year
  Sex: Female
  Weight: 46 kg

DRUGS (8)
  1. JANUVIA [Suspect]
     Route: 048
     Dates: start: 20110101, end: 20110324
  2. TANATRIL [Concomitant]
     Route: 048
     Dates: end: 20110324
  3. DAITALIC [Concomitant]
     Route: 048
  4. CANDESARTAN CILEXETIL [Concomitant]
     Route: 048
  5. JANUVIA [Suspect]
     Dosage: DIVIDED DOSE FREQUENCY UNKNOWN
     Route: 048
     Dates: start: 20110331
  6. AMARYL [Suspect]
     Route: 048
     Dates: start: 20110101, end: 20110324
  7. VOGLIBOSE [Concomitant]
     Route: 048
     Dates: end: 20110324
  8. SPIRONOLACTONE [Concomitant]
     Route: 048

REACTIONS (2)
  - CARDIAC FAILURE [None]
  - HYPOGLYCAEMIA [None]
